FAERS Safety Report 8066481-X (Version None)
Quarter: 2012Q1

REPORT INFORMATION
  Report Type: 
  Country: None (occurrence: None)
  Receive Date: 20120124
  Receipt Date: 20120118
  Transmission Date: 20120608
  Serious: No
  Sender: FDA-Public Use
  Company Number: US-PFIZER INC-2012015335

PATIENT
  Sex: Male
  Weight: 88.435 kg

DRUGS (2)
  1. NAPROXEN [Concomitant]
     Indication: PAIN
     Dosage: 375 MG, 2X/DAY
  2. LYRICA [Suspect]
     Indication: ARTHRITIS
     Dosage: 100 MG, 2X/DAY
     Route: 048
     Dates: start: 20050101

REACTIONS (2)
  - MUSCLE CONTRACTIONS INVOLUNTARY [None]
  - NERVE COMPRESSION [None]
